FAERS Safety Report 22522295 (Version 1)
Quarter: 2023Q2

REPORT INFORMATION
  Report Type: Report from Study
  Country: AR (occurrence: AR)
  Receive Date: 20230605
  Receipt Date: 20230605
  Transmission Date: 20230721
  Serious: Yes (Death, Other)
  Sender: FDA-Public Use
  Company Number: AR-002147023-NVSC2023AR001659

PATIENT
  Age: 56 Year
  Sex: Female

DRUGS (5)
  1. KISQALI [Suspect]
     Active Substance: RIBOCICLIB
     Indication: Breast cancer metastatic
     Dosage: 400 MG, QD
     Route: 048
     Dates: start: 20221031
  2. KISQALI [Suspect]
     Active Substance: RIBOCICLIB
     Dosage: 600 MG, QD
     Route: 048
  3. KISQALI [Suspect]
     Active Substance: RIBOCICLIB
     Dosage: 600 MG, QD (BY MOUTH)
     Route: 048
     Dates: start: 20221031
  4. KISQALI [Suspect]
     Active Substance: RIBOCICLIB
     Dosage: 600 MG, QD (BY MOUTH)
     Route: 048
     Dates: start: 20221031
  5. LETROZOLE [Suspect]
     Active Substance: LETROZOLE
     Indication: Breast cancer metastatic
     Dosage: 2.5 MG, QD (BY MOUTH)
     Route: 048
     Dates: start: 20221031

REACTIONS (9)
  - Death [Fatal]
  - Metastases to thorax [Unknown]
  - Metastases to bone [Unknown]
  - Pain [Unknown]
  - Neck mass [Unknown]
  - Retching [Recovering/Resolving]
  - Headache [Unknown]
  - Vomiting [Recovering/Resolving]
  - Dizziness [Recovering/Resolving]

NARRATIVE: CASE EVENT DATE: 20230102
